FAERS Safety Report 8477442 (Version 4)
Quarter: 2012Q4

REPORT INFORMATION
  Report Type: 
  Country: US (occurrence: US)
  Receive Date: 20120327
  Receipt Date: 20121116
  Transmission Date: 20130627
  Serious: No
  Sender: FDA-Public Use
  Company Number: US-PFIZER INC-2012074505

PATIENT
  Sex: Female

DRUGS (1)
  1. CELEBREX [Suspect]
     Dosage: 200 mg, UNK
     Dates: end: 20121113

REACTIONS (3)
  - Nerve compression [Unknown]
  - Pain [Unknown]
  - Back pain [Unknown]
